FAERS Safety Report 5355613-X (Version None)
Quarter: 2007Q2

REPORT INFORMATION
  Report Type: 
  Country: None (occurrence: None)
  Receive Date: 20070613
  Receipt Date: 20070605
  Transmission Date: 20071010
  Serious: Yes (Hospitalization)
  Sender: FDA-Public Use
  Company Number: B0458863A

PATIENT
  Age: 80 Year
  Sex: Female

DRUGS (6)
  1. MELPHALAN [Suspect]
     Indication: MULTIPLE MYELOMA
     Dosage: 8MG PER DAY
     Route: 048
     Dates: start: 20070121, end: 20070121
  2. NORVASC [Concomitant]
     Indication: DRUG USE FOR UNKNOWN INDICATION
     Route: 048
     Dates: start: 20070108, end: 20070201
  3. NEORECORMON [Concomitant]
     Indication: DRUG USE FOR UNKNOWN INDICATION
     Route: 058
     Dates: start: 20070108, end: 20070201
  4. LANSOX [Concomitant]
     Indication: DRUG USE FOR UNKNOWN INDICATION
     Route: 048
     Dates: start: 20070108, end: 20070201
  5. GASTRO GEL [Concomitant]
     Indication: DRUG USE FOR UNKNOWN INDICATION
     Dosage: 6G PER DAY
     Route: 048
  6. URSODIOL [Concomitant]
     Indication: DRUG USE FOR UNKNOWN INDICATION
     Route: 048
     Dates: start: 20070108, end: 20070201

REACTIONS (5)
  - ERYTHEMA MULTIFORME [None]
  - PRURITUS [None]
  - PYREXIA [None]
  - RASH MACULAR [None]
  - RASH PRURITIC [None]
